FAERS Safety Report 15477452 (Version 1)
Quarter: 2018Q4

REPORT INFORMATION
  Report Type: Spontaneous
  Country: US (occurrence: US)
  Receive Date: 20181002
  Receipt Date: 20181002
  Transmission Date: 20190205
  Serious: No
  Sender: FDA-Public Use
  Company Number: None

PATIENT
  Age: 59 Year
  Sex: Male

DRUGS (3)
  1. MYCOPHENOLATE MOF CAP 250MG [Suspect]
     Active Substance: MYCOPHENOLATE MOFETIL
     Dates: start: 20180123
  2. CYCLOSPORINE CAP 100MG [Suspect]
     Active Substance: CYCLOSPORINE
     Dates: start: 20180205
  3. NEORAL [Suspect]
     Active Substance: CYCLOSPORINE
     Dates: start: 20180205

REACTIONS (2)
  - Off label use [None]
  - Lung transplant [None]

NARRATIVE: CASE EVENT DATE: 20181001
